FAERS Safety Report 5174098-X (Version None)
Quarter: 2006Q4

REPORT INFORMATION
  Report Type: 
  Country: None (occurrence: None)
  Receive Date: 20061214
  Receipt Date: 20050509
  Transmission Date: 20070319
  Serious: No
  Sender: FDA-Public Use
  Company Number: US-AMGEN-US132031

PATIENT
  Sex: Female
  Weight: 97.6 kg

DRUGS (4)
  1. ENBREL [Suspect]
     Indication: ANKYLOSING SPONDYLITIS
     Route: 058
     Dates: start: 20050401, end: 20050419
  2. SULFASALAZINE [Concomitant]
     Route: 065
     Dates: start: 20040604
  3. NEXIUM [Concomitant]
     Route: 065
     Dates: start: 20040604
  4. MOTRIN [Concomitant]
     Route: 065
     Dates: start: 20040604

REACTIONS (1)
  - HYPERSENSITIVITY [None]
